FAERS Safety Report 9023701 (Version 2)
Quarter: 2013Q1

REPORT INFORMATION
  Report Type: Spontaneous
  Country: US (occurrence: US)
  Receive Date: 20130121
  Receipt Date: 20130130
  Transmission Date: 20140127
  Serious: No
  Sender: FDA-Public Use
  Company Number: US-009507513-1301USA007876

PATIENT
  Sex: Male

DRUGS (1)
  1. ASMANEX TWISTHALER [Suspect]
     Dosage: ONE PUFF TWICE A DAY
     Route: 055
     Dates: start: 20130111

REACTIONS (3)
  - Device breakage [Unknown]
  - Drug dose omission [Unknown]
  - No adverse event [Unknown]
